FAERS Safety Report 5074270-3 (Version None)
Quarter: 2006Q3

REPORT INFORMATION
  Report Type: 
  Country: None (occurrence: None)
  Receive Date: 20060803
  Receipt Date: 20060718
  Transmission Date: 20061208
  Serious: Yes (Hospitalization)
  Sender: FDA-Public Use
  Company Number: 2006-00492

PATIENT
  Age: 66 Year
  Sex: Female

DRUGS (18)
  1. VELCADE [Suspect]
     Indication: MULTIPLE MYELOMA
     Dosage: 1.30 MG/M2, INTRAVENOUS
     Route: 042
     Dates: start: 20051220
  2. DOXIL [Suspect]
     Indication: MULTIPLE MYELOMA
     Dosage: 30.00 MG/M2, INTRAVENOUS
     Route: 042
     Dates: start: 20051223
  3. PREMARIN [Concomitant]
  4. LEVOTHYROXINE SODIUM [Concomitant]
  5. MS CONTIN [Concomitant]
  6. LORAZEPAM [Concomitant]
  7. RABEPRAZOLE SODIUM [Concomitant]
  8. CLARITIN [Concomitant]
  9. ASPIRIN TAB [Concomitant]
  10. VITAMIN B COMPLEX (PYRIDOXINE HYDROCHLORIDE, THIAMINE HYDROCHLORIDE, R [Concomitant]
  11. GLUCOSAMINE [Concomitant]
  12. CHONDROITIN SULFATE [Concomitant]
  13. OENOTHERA BIENNIS [Concomitant]
  14. CARBINOXAMINE MALEATE [Concomitant]
  15. VITAMIN E ^ALIUD PHARMA^ (TOCOPHEROL, VEGETABLE OIL) [Concomitant]
  16. LEVAQUIN [Concomitant]
  17. PAMIDRONATE DISODIUM [Concomitant]
  18. MEDROXYPROGESTERONE [Concomitant]

REACTIONS (9)
  - ASTHENIA [None]
  - CONTUSION [None]
  - DECREASED APPETITE [None]
  - DYSPNOEA EXERTIONAL [None]
  - FALL [None]
  - HYPERREFLEXIA [None]
  - LUMBAR SPINAL STENOSIS [None]
  - PANCYTOPENIA [None]
  - PETECHIAE [None]
